FAERS Safety Report 9293445 (Version 1)
Quarter: 2013Q2

REPORT INFORMATION
  Report Type: Spontaneous
  Country: US (occurrence: US)
  Receive Date: 20130516
  Receipt Date: 20130516
  Transmission Date: 20140414
  Serious: No
  Sender: FDA-Public Use
  Company Number: US-BAYER-2013-060087

PATIENT
  Sex: Female

DRUGS (2)
  1. FINACEA [Suspect]
     Indication: ROSACEA
     Dosage: UNK
     Dates: start: 2010, end: 2012
  2. FINACEA [Suspect]
     Indication: ROSACEA
     Dosage: UNK
     Dates: start: 201210, end: 201210

REACTIONS (3)
  - Application site dryness [None]
  - Application site pain [None]
  - Seborrhoeic dermatitis [None]
